FAERS Safety Report 16299125 (Version 2)
Quarter: 2019Q2

REPORT INFORMATION
  Report Type: Spontaneous
  Country: DE (occurrence: DE)
  Receive Date: 20190510
  Receipt Date: 20190515
  Transmission Date: 20190711
  Serious: Yes (Life-Threatening, Hospitalization, Disabling, Other)
  Sender: FDA-Public Use
  Company Number: PHHY2019DE104887

PATIENT
  Age: 69 Year
  Sex: Male
  Weight: 88 kg

DRUGS (43)
  1. DEXAMETHASONE. [Suspect]
     Active Substance: DEXAMETHASONE
     Dosage: 2 MG, QD
     Route: 048
     Dates: start: 20180409, end: 20180515
  2. DEXAMETHASONE. [Suspect]
     Active Substance: DEXAMETHASONE
     Dosage: 3 MG, QD
     Route: 048
     Dates: start: 20180612, end: 20180709
  3. COBIMETINIB. [Suspect]
     Active Substance: COBIMETINIB
     Dosage: 40 MG, QD
     Route: 048
     Dates: start: 20170831, end: 20170903
  4. COBIMETINIB. [Suspect]
     Active Substance: COBIMETINIB
     Dosage: 40 MG, QD
     Route: 048
     Dates: start: 20180423, end: 20180514
  5. VEMURAFENIB. [Suspect]
     Active Substance: VEMURAFENIB
     Indication: METASTATIC MALIGNANT MELANOMA
     Dosage: 1920 MG, QD (DOSE 240 MG X 4 (960 MG))
     Route: 048
     Dates: start: 20170823, end: 20170826
  6. VEMURAFENIB. [Suspect]
     Active Substance: VEMURAFENIB
     Dosage: 960 MG, QD
     Route: 048
     Dates: start: 20170827, end: 20170828
  7. VEMURAFENIB. [Suspect]
     Active Substance: VEMURAFENIB
     Dosage: 1440 MG, QD
     Route: 048
     Dates: start: 20170904, end: 20170906
  8. VEMURAFENIB. [Suspect]
     Active Substance: VEMURAFENIB
     Dosage: 1920 MG, QD
     Route: 048
     Dates: start: 20180823
  9. PANTOPRAZOLE [Concomitant]
     Active Substance: PANTOPRAZOLE
     Indication: PROPHYLAXIS
     Dosage: 40 MG, QD
     Route: 048
     Dates: start: 20170201
  10. FOLVERLAN [Concomitant]
     Active Substance: FOLIC ACID
     Indication: PROPHYLAXIS
  11. DEXAMETHASONE. [Suspect]
     Active Substance: DEXAMETHASONE
     Indication: PROCEDURAL HEADACHE
     Dosage: 5 MG, QD
     Route: 031
     Dates: start: 20170929
  12. COBIMETINIB. [Suspect]
     Active Substance: COBIMETINIB
     Indication: METASTATIC MALIGNANT MELANOMA
     Dosage: 60 MG, QD (DOSE 20 MG X 3 (60 MG))
     Route: 048
     Dates: start: 20170823, end: 20170828
  13. VOMEX A [Concomitant]
     Active Substance: DIMENHYDRINATE
     Indication: PAIN
     Dosage: 150 MG, QD (IN CASE OF NAUSEA MAX. 3 TIMES PER DAY)
     Route: 065
     Dates: start: 20180620
  14. DEXAMETHASONE. [Suspect]
     Active Substance: DEXAMETHASONE
     Dosage: 1 MG, QD
     Route: 048
     Dates: start: 20180604, end: 20180606
  15. DEXAMETHASONE. [Suspect]
     Active Substance: DEXAMETHASONE
     Dosage: 2 MG, QD
     Route: 048
     Dates: start: 20180710, end: 20180723
  16. DEXAMETHASONE. [Suspect]
     Active Substance: DEXAMETHASONE
     Dosage: 1.5 MG, QD
     Route: 048
     Dates: start: 20180724, end: 20180806
  17. DEXAMETHASONE. [Suspect]
     Active Substance: DEXAMETHASONE
     Dosage: 1 MG, QD
     Route: 048
     Dates: start: 20180807
  18. VEMURAFENIB. [Suspect]
     Active Substance: VEMURAFENIB
     Dosage: 1440 MG, QD
     Route: 048
     Dates: start: 20170907, end: 20180618
  19. FERRO SANOL [Concomitant]
     Active Substance: FERROUS GLYCINE SULFATE
     Indication: PROPHYLAXIS
     Dosage: 100 MG, QD (PROPHYLAXIS OF IRON)
     Route: 048
     Dates: start: 20181022
  20. VOMEX A [Concomitant]
     Active Substance: DIMENHYDRINATE
     Indication: PROPHYLAXIS OF NAUSEA AND VOMITING
     Dosage: UNK
     Route: 065
  21. SIMVASTATIN. [Concomitant]
     Active Substance: SIMVASTATIN
     Indication: HYPERTENSION
     Dosage: UNK
     Route: 065
  22. LEVETIRACETAM. [Concomitant]
     Active Substance: LEVETIRACETAM
     Indication: METASTASES TO CENTRAL NERVOUS SYSTEM
     Dosage: 1250 MG, Q12H
     Route: 048
  23. UNACID [Concomitant]
     Indication: PRODUCT USED FOR UNKNOWN INDICATION
     Dosage: UNK
     Route: 065
     Dates: start: 20180101
  24. DEXAMETHASONE. [Suspect]
     Active Substance: DEXAMETHASONE
     Indication: PROCEDURAL NAUSEA
     Dosage: 12 MG, QD
     Route: 048
     Dates: start: 20170828, end: 20170831
  25. DEXAMETHASONE. [Suspect]
     Active Substance: DEXAMETHASONE
     Indication: BRAIN OEDEMA
     Dosage: 1 MG, QD
     Route: 031
     Dates: start: 20170929
  26. DEXAMETHASONE. [Suspect]
     Active Substance: DEXAMETHASONE
     Dosage: 1 MG, QD
     Route: 048
     Dates: start: 20180516, end: 20180604
  27. METOPROLOL. [Concomitant]
     Active Substance: METOPROLOL
     Indication: VASCULAR GRAFT
     Dosage: 95 MG, Q12H
     Route: 048
     Dates: start: 20140501
  28. RAMIPRIL. [Concomitant]
     Active Substance: RAMIPRIL
     Indication: HYPERTENSION
     Dosage: UNK
     Route: 065
  29. ACETYLSALICYLIC ACID [Concomitant]
     Active Substance: ASPIRIN
     Indication: HYPERTENSION
     Dosage: UNK
     Route: 065
  30. ACETYLSALICYLIC ACID [Concomitant]
     Active Substance: ASPIRIN
     Indication: VASCULAR GRAFT
     Dosage: 100 MG, QD
     Route: 048
     Dates: start: 20140501
  31. DEXAMETHASONE. [Suspect]
     Active Substance: DEXAMETHASONE
     Indication: PROCEDURAL VOMITING
     Dosage: 2 MG, QD
     Route: 048
     Dates: start: 20170922, end: 20180123
  32. DEXAMETHASONE. [Suspect]
     Active Substance: DEXAMETHASONE
     Dosage: 4 MG, QD
     Route: 048
     Dates: start: 20180607, end: 20180611
  33. VEMURAFENIB. [Suspect]
     Active Substance: VEMURAFENIB
     Dosage: 960 MG, QD
     Route: 048
     Dates: start: 20170831, end: 20170903
  34. MONO EMBOLEX [Concomitant]
     Active Substance: CERTOPARIN SODIUM
     Indication: PROPHYLAXIS
  35. METOPROLOL. [Concomitant]
     Active Substance: METOPROLOL
     Indication: HYPERTENSION
     Dosage: UNK
     Route: 065
  36. DEXAMETHASONE. [Suspect]
     Active Substance: DEXAMETHASONE
     Indication: RETINOPATHY
     Dosage: 4 MG, QD
     Route: 048
     Dates: start: 20170904, end: 20170921
  37. DEXAMETHASONE. [Suspect]
     Active Substance: DEXAMETHASONE
     Indication: METASTASES TO CENTRAL NERVOUS SYSTEM
     Dosage: 4 MG, QD
     Route: 048
     Dates: start: 20180124, end: 20180220
  38. COBIMETINIB. [Suspect]
     Active Substance: COBIMETINIB
     Dosage: 60 MG, QD
     Route: 048
     Dates: start: 20170904, end: 20180327
  39. DEXAMETHASONE. [Suspect]
     Active Substance: DEXAMETHASONE
     Indication: VISION BLURRED
     Dosage: 8 MG, QD
     Route: 048
     Dates: start: 20170901, end: 20170903
  40. RAMIPRIL. [Concomitant]
     Active Substance: RAMIPRIL
     Indication: VASCULAR GRAFT
     Dosage: 5 MG, QD (MOST RECENT DOSE IN 02 NOV 2017)
     Route: 048
     Dates: start: 20140501
  41. SIMVASTATIN. [Concomitant]
     Active Substance: SIMVASTATIN
     Indication: VASCULAR GRAFT
     Dosage: 30 MG, QD
     Route: 048
     Dates: start: 20150501
  42. MONO EMBOLEX [Concomitant]
     Active Substance: CERTOPARIN SODIUM
     Indication: PROPHYLAXIS
     Dosage: 3000 IU, QD
     Route: 058
     Dates: start: 20170131
  43. FOLVERLAN [Concomitant]
     Active Substance: FOLIC ACID
     Indication: PROPHYLAXIS
     Dosage: 1 OT, QD (PROPHYLAXIS OF FOLATE SHORTAGE)
     Route: 048
     Dates: start: 20181022

REACTIONS (35)
  - Mucosal dryness [Unknown]
  - Pulmonary embolism [Unknown]
  - Pyrexia [Recovered/Resolved]
  - Fatigue [Unknown]
  - Retinopathy [Recovering/Resolving]
  - Retinopathy [Unknown]
  - Epidural lipomatosis [Unknown]
  - Epilepsy [Unknown]
  - Vision blurred [Recovered/Resolved]
  - Spinal osteoarthritis [Unknown]
  - Intervertebral disc protrusion [Unknown]
  - Monoparesis [Not Recovered/Not Resolved]
  - Fatigue [Not Recovered/Not Resolved]
  - Skin hypopigmentation [Not Recovered/Not Resolved]
  - Cerebral ischaemia [Unknown]
  - Dermal cyst [Not Recovered/Not Resolved]
  - Brain oedema [Not Recovered/Not Resolved]
  - Small intestinal haemorrhage [Recovered/Resolved]
  - Cough [Unknown]
  - Hyperglycaemia [Recovering/Resolving]
  - Skin mass [Unknown]
  - Lymphoedema [Unknown]
  - Conjunctivitis [Not Recovered/Not Resolved]
  - Dysgeusia [Unknown]
  - Cataract [Not Recovered/Not Resolved]
  - Peripheral nerve lesion [Unknown]
  - Hyperkeratosis [Unknown]
  - Subcutaneous abscess [Recovered/Resolved]
  - Muscular weakness [Unknown]
  - Photosensitivity reaction [Unknown]
  - Peripheral motor neuropathy [Unknown]
  - Pain in extremity [Not Recovered/Not Resolved]
  - Skin infection [Unknown]
  - Peripheral sensory neuropathy [Unknown]
  - Metastases to central nervous system [Unknown]

NARRATIVE: CASE EVENT DATE: 20170823
